FAERS Safety Report 12246559 (Version 1)
Quarter: 2016Q2

REPORT INFORMATION
  Report Type: Spontaneous
  Country: JP (occurrence: JP)
  Receive Date: 20160407
  Receipt Date: 20160407
  Transmission Date: 20160815
  Serious: Yes (Hospitalization)
  Sender: FDA-Public Use
  Company Number: JP-IMPAX LABORATORIES, INC-2016-IPXL-00344

PATIENT
  Age: 73 Year
  Sex: Female

DRUGS (1)
  1. ADRENACLICK [Suspect]
     Active Substance: EPINEPHRINE
     Indication: CAROTID PULSE ABNORMAL
     Dosage: 1 MG, UNK
     Route: 042

REACTIONS (3)
  - Pulmonary oedema [Recovering/Resolving]
  - Stress cardiomyopathy [Recovering/Resolving]
  - Renal failure [Recovering/Resolving]
